FAERS Safety Report 19300589 (Version 1)
Quarter: 2021Q2

REPORT INFORMATION
  Report Type: Spontaneous
  Country: CN (occurrence: CN)
  Receive Date: 20210524
  Receipt Date: 20210524
  Transmission Date: 20210717
  Serious: Yes (Other)
  Sender: FDA-Public Use
  Company Number: CN-OTSUKA-2021_015648

PATIENT
  Age: 23 Year
  Sex: Female

DRUGS (10)
  1. VENETOCLAX. [Suspect]
     Active Substance: VENETOCLAX
     Dosage: DAY 3?28 (CYCLE 1,2 AND 4) (400 MG)
     Route: 048
  2. IDARUBICIN [Suspect]
     Active Substance: IDARUBICIN
     Indication: ACUTE LEUKAEMIA
     Dosage: DAYS 1?3 (12 MG/M2)
     Route: 042
  3. DACOGEN [Suspect]
     Active Substance: DECITABINE
     Indication: ACUTE LEUKAEMIA
     Dosage: CYCLE 1,2 AND 4 (50 MG)
     Route: 042
  4. VENETOCLAX. [Suspect]
     Active Substance: VENETOCLAX
     Indication: ACUTE LEUKAEMIA
     Dosage: DAY 1 (CYCLE 1,2 AND 4) (100 MG)
     Route: 048
  5. DEXAMETHASONE. [Suspect]
     Active Substance: DEXAMETHASONE
     Dosage: DAYS 1?16 (CYCLE 4) (10 MG)
     Route: 065
  6. VINDESINE [Suspect]
     Active Substance: VINDESINE
     Indication: ACUTE LEUKAEMIA
     Dosage: DAYS 1, 8, 15, AND 22 (CYCLE 3 AND 4) (4 MG)
     Route: 042
  7. DEXAMETHASONE. [Suspect]
     Active Substance: DEXAMETHASONE
     Dosage: DAYS 17?20 (CYCLE 4) (5 MG)
     Route: 065
  8. DEXAMETHASONE. [Suspect]
     Active Substance: DEXAMETHASONE
     Dosage: DAYS 21?22 (CYCLE 4) (2.5 MG)
     Route: 065
  9. VENETOCLAX. [Suspect]
     Active Substance: VENETOCLAX
     Dosage: DAY 2 (CYCLE 1,2 AND 4) (200 MG)
     Route: 048
  10. DEXAMETHASONE. [Suspect]
     Active Substance: DEXAMETHASONE
     Indication: ACUTE LEUKAEMIA
     Dosage: DAYS 1?28 (CYCLE 3) (15 MG)
     Route: 042

REACTIONS (6)
  - Thrombocytopenia [Unknown]
  - Anaemia [Unknown]
  - Gastrointestinal disorder [Unknown]
  - Neutropenia [Unknown]
  - Inappropriate schedule of product administration [Unknown]
  - Off label use [Unknown]
